FAERS Safety Report 9738272 (Version 1)
Quarter: 2013Q4

REPORT INFORMATION
  Report Type: Spontaneous
  Country: US (occurrence: US)
  Receive Date: 20131208
  Receipt Date: 20131208
  Transmission Date: 20140711
  Serious: No
  Sender: FDA-Public Use
  Company Number: -SAAVPROD-RENA-1001733

PATIENT
  Sex: Male

DRUGS (1)
  1. SEVELAMER CARBONATE [Suspect]
     Indication: HYPERPHOSPHATAEMIA
     Dosage: 1600 MG, 3 TIMES DAILY
     Route: 065
     Dates: start: 201301, end: 201301

REACTIONS (1)
  - Pruritus generalised [Recovered/Resolved]
